FAERS Safety Report 26111440 (Version 1)
Quarter: 2025Q4

REPORT INFORMATION
  Report Type: Spontaneous
  Country: US (occurrence: US)
  Receive Date: 20251202
  Receipt Date: 20251202
  Transmission Date: 20260117
  Serious: Yes (Other)
  Sender: CSL BEHRING
  Company Number: US-BEH-2025227616

PATIENT
  Age: 61 Year
  Sex: Female
  Weight: 58.5 kg

DRUGS (1)
  1. MIRCERA [Suspect]
     Active Substance: METHOXY POLYETHYLENE GLYCOL-EPOETIN BETA
     Indication: Anaemia
     Dosage: 30 ?G, QOW
     Route: 040
     Dates: start: 20251121, end: 20251121

REACTIONS (8)
  - Unresponsive to stimuli [Unknown]
  - Agonal respiration [Unknown]
  - Seizure [Unknown]
  - Drug hypersensitivity [Unknown]
  - Muscle rigidity [Unknown]
  - Blood pressure increased [Unknown]
  - Nausea [Unknown]
  - Vomiting [Unknown]

NARRATIVE: CASE EVENT DATE: 20251121
